FAERS Safety Report 7537560-8 (Version None)
Quarter: 2011Q2

REPORT INFORMATION
  Report Type: 
  Country: None (occurrence: None)
  Receive Date: 20110609
  Receipt Date: 20070611
  Transmission Date: 20111010
  Serious: Yes (Death)
  Sender: FDA-Public Use
  Company Number: PHEH2007US04579

PATIENT
  Sex: Female

DRUGS (2)
  1. REGLAN [Concomitant]
  2. CLOZAPINE [Suspect]
     Indication: TARDIVE DYSKINESIA
     Dosage: 50 MG AM, 75 MG PM
     Route: 048
     Dates: start: 19990101, end: 20070101

REACTIONS (1)
  - DEATH [None]
